FAERS Safety Report 6362384-7 (Version None)
Quarter: 2009Q3

REPORT INFORMATION
  Report Type: 
  Country: None (occurrence: None)
  Receive Date: 20090918
  Receipt Date: 20090603
  Transmission Date: 20100115
  Serious: No
  Sender: FDA-Public Use
  Company Number: PR-ABBOTT-09P-131-0577731-00

PATIENT
  Sex: Male
  Weight: 44.038 kg

DRUGS (4)
  1. HUMIRA [Suspect]
     Indication: CROHN'S DISEASE
     Route: 058
     Dates: start: 20080228
  2. PENTASA [Concomitant]
     Indication: CROHN'S DISEASE
     Route: 048
  3. MEDROL [Concomitant]
     Indication: CROHN'S DISEASE
     Route: 048
  4. NEXIUM [Concomitant]
     Indication: GASTRITIS
     Route: 048

REACTIONS (5)
  - INJECTION SITE ERYTHEMA [None]
  - INJECTION SITE PRURITUS [None]
  - INJECTION SITE REACTION [None]
  - INJECTION SITE SWELLING [None]
  - INJECTION SITE WARMTH [None]
